FAERS Safety Report 6434932-X (Version None)
Quarter: 2009Q4

REPORT INFORMATION
  Report Type: 
  Country: None (occurrence: None)
  Receive Date: 20091106
  Receipt Date: 20091030
  Transmission Date: 20100525
  Serious: Yes (Other)
  Sender: FDA-Public Use
  Company Number: SPV1-2009-02030

PATIENT
  Age: 82 Year
  Sex: Male

DRUGS (2)
  1. FOSRENOL [Suspect]
     Indication: HYPERPHOSPHATAEMIA
     Dosage: ORAL
     Route: 048
     Dates: start: 20090723, end: 20091015
  2. ROCEPHIN [Concomitant]

REACTIONS (7)
  - DRUG ADMINISTRATION ERROR [None]
  - FOREIGN BODY [None]
  - FOREIGN BODY ASPIRATION [None]
  - HYPOREFLEXIA [None]
  - TOOTH DISORDER [None]
  - WRONG TECHNIQUE IN DRUG USAGE PROCESS [None]
  - X-RAY ABNORMAL [None]
